FAERS Safety Report 4813243-X (Version None)
Quarter: 2005Q4

REPORT INFORMATION
  Report Type: 
  Country: None (occurrence: None)
  Receive Date: 20051028
  Receipt Date: 20050415
  Transmission Date: 20060501
  Serious: No
  Sender: FDA-Public Use
  Company Number: US-GLAXOSMITHKLINE-A0554379A

PATIENT
  Age: 76 Year
  Sex: Male

DRUGS (11)
  1. ADVAIR DISKUS 100/50 [Suspect]
     Indication: CHRONIC OBSTRUCTIVE PULMONARY DISEASE
     Route: 055
     Dates: start: 20031201
  2. KLOR-CON [Concomitant]
  3. ISOSORBIDE [Concomitant]
  4. FUROSEMIDE [Concomitant]
  5. BUSPIRONE HCL [Concomitant]
  6. ZOLOFT [Concomitant]
  7. ASPIRIN [Concomitant]
  8. NORVASC [Concomitant]
  9. VITAMIN CAP [Concomitant]
  10. COMBIVENT [Concomitant]
  11. OXYGEN THERAPY [Concomitant]

REACTIONS (4)
  - DRUG INEFFECTIVE [None]
  - DYSPNOEA [None]
  - HAEMOPTYSIS [None]
  - PHARMACEUTICAL PRODUCT COMPLAINT [None]
